FAERS Safety Report 7022722-9 (Version None)
Quarter: 2010Q3

REPORT INFORMATION
  Report Type: 
  Country: None (occurrence: None)
  Receive Date: 20100930
  Receipt Date: 20100924
  Transmission Date: 20110219
  Serious: Yes (Hospitalization)
  Sender: FDA-Public Use
  Company Number: A0836704A

PATIENT
  Age: 64 Year
  Sex: Male
  Weight: 163.6 kg

DRUGS (1)
  1. AVANDIA [Suspect]
     Route: 048
     Dates: start: 20031001, end: 20050501

REACTIONS (3)
  - HEPATIC FAILURE [None]
  - NEPHROPATHY [None]
  - RENAL FAILURE [None]
